FAERS Safety Report 18642882 (Version 2)
Quarter: 2021Q2

REPORT INFORMATION
  Report Type: Other
  Country: US (occurrence: US)
  Receive Date: 20201221
  Receipt Date: 20210520
  Transmission Date: 20210717
  Serious: Yes (Other)
  Sender: FDA-Public Use
  Company Number: US-ROCHE-2699891

PATIENT
  Age: 46 Year
  Sex: Female
  Weight: 66.28 kg

DRUGS (4)
  1. OCREVUS [Suspect]
     Active Substance: OCRELIZUMAB
     Indication: RELAPSING MULTIPLE SCLEROSIS
     Route: 042
     Dates: start: 20201020
  2. OCREVUS [Suspect]
     Active Substance: OCRELIZUMAB
     Indication: PRIMARY PROGRESSIVE MULTIPLE SCLEROSIS
     Dosage: DATE OF TREATMENT: 14?SEP?2020
     Route: 042
     Dates: start: 20200901
  3. OCREVUS [Suspect]
     Active Substance: OCRELIZUMAB
     Route: 042
     Dates: start: 202009
  4. OCREVUS [Suspect]
     Active Substance: OCRELIZUMAB
     Dosage: 300 MG THEN 300 MG 2 WEEKS LATER, ONGOING : UNKNOWN
     Route: 042
     Dates: start: 20200901, end: 20200914

REACTIONS (18)
  - Constipation [Recovering/Resolving]
  - Illness [Recovered/Resolved]
  - Pain in extremity [Unknown]
  - Pain [Unknown]
  - Weight increased [Not Recovered/Not Resolved]
  - Flushing [Recovered/Resolved]
  - Swelling [Recovering/Resolving]
  - Limb discomfort [Not Recovered/Not Resolved]
  - Oedema [Recovering/Resolving]
  - Alopecia [Not Recovered/Not Resolved]
  - Lymphoedema [Not Recovered/Not Resolved]
  - Hypersensitivity [Not Recovered/Not Resolved]
  - Asthenia [Not Recovered/Not Resolved]
  - Gastric dilatation [Not Recovered/Not Resolved]
  - Skin reaction [Recovering/Resolving]
  - Fall [Unknown]
  - Arthralgia [Unknown]
  - Nausea [Recovered/Resolved]

NARRATIVE: CASE EVENT DATE: 20200901
